FAERS Safety Report 4451069-X (Version None)
Quarter: 2004Q3

REPORT INFORMATION
  Report Type: 
  Country: None (occurrence: None)
  Receive Date: 20040913
  Receipt Date: 20040621
  Transmission Date: 20050211
  Serious: No
  Sender: FDA-Public Use
  Company Number: 2004-BP-04876BP (0)

PATIENT
  Age: 70 Year
  Sex: Female

DRUGS (6)
  1. SPIRIVA [Suspect]
     Indication: CHRONIC OBSTRUCTIVE AIRWAYS DISEASE
     Dosage: 18 MCG (18 MCG), IH
     Route: 055
     Dates: start: 20040519
  2. ADVAIR (SERETIDE MITE) [Concomitant]
  3. PLAVIX [Concomitant]
  4. PREVACID [Concomitant]
  5. ZOCOR [Concomitant]
  6. ZYRTEC [Concomitant]

REACTIONS (2)
  - ALOPECIA [None]
  - PRURITUS GENERALISED [None]
